FAERS Safety Report 17949111 (Version 1)
Quarter: 2020Q2

REPORT INFORMATION
  Report Type: Spontaneous
  Country: US (occurrence: US)
  Receive Date: 20200625
  Receipt Date: 20200625
  Transmission Date: 20200714
  Serious: Yes (Hospitalization)
  Sender: FDA-Public Use
  Company Number: US-ROCHE-2404869

PATIENT
  Age: 49 Year
  Sex: Male

DRUGS (9)
  1. CLONAZEPAM. [Suspect]
     Active Substance: CLONAZEPAM
     Dosage: FIRST 2 DAYS IN THE HOSPITAL DURING THE CURRENT ADMISSION
     Route: 065
  2. CLONAZEPAM. [Suspect]
     Active Substance: CLONAZEPAM
     Dosage: 3RD DAY IN THE HOSPITAL DURING THE CURRENT ADMISSION?AT 9:00 P.M.
     Route: 065
  3. AMOBARBITAL [Suspect]
     Active Substance: AMOBARBITAL
     Indication: SCHIZOAFFECTIVE DISORDER
     Dosage: 265 MG X 2 DOSES
     Route: 065
  4. AMOBARBITAL [Suspect]
     Active Substance: AMOBARBITAL
     Dosage: AT 9:30 P.M.
     Route: 065
  5. CLONAZEPAM. [Suspect]
     Active Substance: CLONAZEPAM
     Dosage: 3RD DAY IN THE HOSPITAL DURING THE CURRENT ADMISSION?AT 8:00 A.M.
     Route: 065
  6. AMOBARBITAL [Suspect]
     Active Substance: AMOBARBITAL
     Dosage: AT 10:30 P.M.
     Route: 065
  7. CLONAZEPAM. [Suspect]
     Active Substance: CLONAZEPAM
     Dosage: 3RD DAY IN THE HOSPITAL DURING THE CURRENT ADMISSION?AT 5:00 P.M.
     Route: 065
  8. LITHIUM. [Concomitant]
     Active Substance: LITHIUM
     Route: 065
  9. CLONAZEPAM. [Suspect]
     Active Substance: CLONAZEPAM
     Indication: SCHIZOAFFECTIVE DISORDER
     Route: 065

REACTIONS (2)
  - Coma [Recovered/Resolved]
  - Respiratory depression [Recovered/Resolved]
